FAERS Safety Report 16826842 (Version 10)
Quarter: 2023Q1

REPORT INFORMATION
  Report Type: Report from Study
  Country: JP (occurrence: JP)
  Receive Date: 20190919
  Receipt Date: 20230203
  Transmission Date: 20230418
  Serious: Yes (Hospitalization, Other)
  Sender: FDA-Public Use
  Company Number: JP-ONO-2019JP031018

PATIENT
  Age: 79 Year
  Sex: Female
  Weight: 50 kg

DRUGS (12)
  1. ETELCALCETIDE [Suspect]
     Active Substance: ETELCALCETIDE
     Indication: Hyperparathyroidism secondary
     Dosage: 5 MILLIGRAM
     Route: 010
     Dates: end: 20180427
  2. DARBEPOETIN ALFA [Concomitant]
     Active Substance: DARBEPOETIN ALFA
     Dosage: 80 MICROGRAM, QWK
     Route: 065
     Dates: end: 20210206
  3. CALCITRIOL [Concomitant]
     Active Substance: CALCITRIOL
     Dosage: 0.5 MICROGRAM, QWK
     Route: 065
     Dates: end: 20190220
  4. CALCITRIOL [Concomitant]
     Active Substance: CALCITRIOL
     Dosage: 0.5 MICROGRAM, Q56H
     Route: 065
     Dates: start: 20190703, end: 20190805
  5. CALCITRIOL [Concomitant]
     Active Substance: CALCITRIOL
     Dosage: 0.5 MICROGRAM, Q84H
     Route: 065
     Dates: start: 20190906, end: 20191127
  6. Calfina [Concomitant]
     Dosage: 0.25 MICROGRAM, QD
     Route: 048
     Dates: start: 20190313, end: 20190513
  7. FOSRENOL [Concomitant]
     Active Substance: LANTHANUM CARBONATE
     Dosage: 1500 MILLIGRAM, QD
     Route: 048
     Dates: end: 20201014
  8. FOSRENOL [Concomitant]
     Active Substance: LANTHANUM CARBONATE
     Dosage: 2250 MILLIGRAM, QD
     Route: 048
     Dates: start: 20201015, end: 20220706
  9. FOSRENOL [Concomitant]
     Active Substance: LANTHANUM CARBONATE
     Dosage: 1500 MILLIGRAM, QD
     Route: 048
     Dates: start: 20220707
  10. CALCIUM CARBONATE [Concomitant]
     Active Substance: CALCIUM CARBONATE
     Dosage: 1500 MILLIGRAM, QD
     Route: 065
     Dates: start: 20181108, end: 20201214
  11. EVOCALCET [Concomitant]
     Active Substance: EVOCALCET
     Dosage: 1 MILLIGRAM, QD
     Route: 048
     Dates: start: 20181005, end: 20211206
  12. EVOCALCET [Concomitant]
     Active Substance: EVOCALCET
     Dosage: 2 MILLIGRAM, QD
     Route: 048
     Dates: start: 20211207

REACTIONS (3)
  - Cataract [Recovered/Resolved]
  - Cataract [Recovered/Resolved]
  - Arrhythmia [Recovering/Resolving]

NARRATIVE: CASE EVENT DATE: 20190304
